FAERS Safety Report 7611319-5 (Version None)
Quarter: 2011Q3

REPORT INFORMATION
  Report Type: 
  Country: None (occurrence: None)
  Receive Date: 20110715
  Receipt Date: 20110617
  Transmission Date: 20111222
  Serious: Yes (Other)
  Sender: FDA-Public Use
  Company Number: US-BAYER-2011-053219

PATIENT
  Age: 62 Year
  Sex: Female
  Weight: 49 kg

DRUGS (4)
  1. ALEVE (CAPLET) [Suspect]
     Indication: ARTHRITIS
     Dosage: 2 DF, QD
     Route: 048
     Dates: start: 20110616, end: 20110616
  2. CALCIUM CARBONATE [Concomitant]
  3. ALEVE (CAPLET) [Suspect]
     Dosage: 2 DF, UNK
     Route: 048
     Dates: start: 20110501, end: 20110501
  4. MULTI-VITAMIN [Concomitant]

REACTIONS (7)
  - RASH GENERALISED [None]
  - BURNING SENSATION [None]
  - PRURITUS [None]
  - SKIN DISORDER [None]
  - PALMAR ERYTHEMA [None]
  - HYPERSENSITIVITY [None]
  - ERYTHEMA [None]
